FAERS Safety Report 6983555-2 (Version None)
Quarter: 2010Q3

REPORT INFORMATION
  Report Type: 
  Country: None (occurrence: None)
  Receive Date: 20100914
  Receipt Date: 20081113
  Transmission Date: 20110219
  Serious: No
  Sender: FDA-Public Use
  Company Number: US-WYE-H06293108

PATIENT
  Age: 68 Year
  Sex: Male
  Weight: 77.18 kg

DRUGS (1)
  1. ADVIL LIQUI-GELS [Suspect]
     Indication: PAIN IN EXTREMITY
     Dosage: 1 LIQUI-GEL UP TO 5 TIMES PER DAY
     Route: 048
     Dates: start: 20081001, end: 20081005

REACTIONS (3)
  - DRUG EFFECT DECREASED [None]
  - MUSCLE STRAIN [None]
  - MUSCULOSKELETAL STIFFNESS [None]
